FAERS Safety Report 9347932 (Version 1)
Quarter: 2013Q2

REPORT INFORMATION
  Report Type: Spontaneous
  Country: US (occurrence: None)
  Receive Date: 20130612
  Receipt Date: 20130612
  Transmission Date: 20140414
  Serious: Yes (Hospitalization)
  Sender: FDA-Public Use
  Company Number: None

PATIENT
  Age: 79 Year
  Sex: Male

DRUGS (1)
  1. FOSRENOL [Suspect]
     Route: 048
     Dates: start: 20130517

REACTIONS (4)
  - Fall [None]
  - Constipation [None]
  - Back pain [None]
  - Balance disorder [None]
